FAERS Safety Report 14874925 (Version 1)
Quarter: 2018Q2

REPORT INFORMATION
  Report Type: Spontaneous
  Country: CN (occurrence: CN)
  Receive Date: 20180510
  Receipt Date: 20180510
  Transmission Date: 20180711
  Serious: Yes (Other)
  Sender: FDA-Public Use
  Company Number: CN-BAYER-2018-089856

PATIENT
  Sex: Male

DRUGS (1)
  1. NEXAVAR [Suspect]
     Active Substance: SORAFENIB
     Dosage: 2 DF, BID
     Route: 048
     Dates: start: 2017

REACTIONS (2)
  - Alpha 1 foetoprotein increased [Not Recovered/Not Resolved]
  - Disease progression [None]
